FAERS Safety Report 7642811 (Version 2)
Quarter: 2014Q1

REPORT INFORMATION
  Report Type: Spontaneous
  Country: DE (occurrence: DE)
  Receive Date: 20101027
  Receipt Date: 20140206
  Transmission Date: 20141002
  Serious: Yes (Congenital Anomaly)
  Sender: FDA-Public Use
  Company Number: DE-ROCHE-57420

PATIENT
  Sex: 0

DRUGS (1)
  1. MEFLOQUINE [Suspect]
     Indication: MALARIA PROPHYLAXIS
     Route: 064
     Dates: start: 19951022, end: 19951218

REACTIONS (3)
  - Developmental hip dysplasia [Unknown]
  - Imminent abortion [Recovering/Resolving]
  - Jaundice neonatal [Recovered/Resolved]
